FAERS Safety Report 12530884 (Version 2)
Quarter: 2016Q3

REPORT INFORMATION
  Report Type: Spontaneous
  Country: US (occurrence: US)
  Receive Date: 20160706
  Receipt Date: 20160712
  Transmission Date: 20161109
  Serious: Yes (Death, Other)
  Sender: FDA-Public Use
  Company Number: US-PFIZER INC-2016327067

PATIENT
  Age: 17 Year
  Sex: Female

DRUGS (1)
  1. FENTANYL CITRATE. [Suspect]
     Active Substance: FENTANYL CITRATE
     Indication: PAIN MANAGEMENT
     Dosage: A DOSE SLOW IV PUSH
     Route: 040

REACTIONS (3)
  - Brain injury [Fatal]
  - Cardiac arrest [Fatal]
  - Respiratory arrest [Fatal]
